FAERS Safety Report 5799331-2 (Version None)
Quarter: 2008Q3

REPORT INFORMATION
  Report Type: 
  Country: None (occurrence: None)
  Receive Date: 20080702
  Receipt Date: 20080623
  Transmission Date: 20090109
  Serious: Yes (Other)
  Sender: FDA-Public Use
  Company Number: GB-PFIZER INC-2008052972

PATIENT
  Age: 89 Year
  Sex: Male

DRUGS (2)
  1. EPANUTIN SUSPENSION [Suspect]
  2. CORTICOSTEROIDS [Concomitant]

REACTIONS (7)
  - BODY TEMPERATURE INCREASED [None]
  - CEREBROVASCULAR ACCIDENT [None]
  - CHEST PAIN [None]
  - DYSPNOEA [None]
  - HEART RATE IRREGULAR [None]
  - MUSCULOSKELETAL PAIN [None]
  - PULMONARY CONGESTION [None]
